FAERS Safety Report 16462856 (Version 1)
Quarter: 2019Q2

REPORT INFORMATION
  Report Type: Spontaneous
  Country: US (occurrence: US)
  Receive Date: 20190621
  Receipt Date: 20190621
  Transmission Date: 20190711
  Serious: No
  Sender: FDA-Public Use
  Company Number: US-TEVA-2019-US-1055959

PATIENT
  Sex: Female

DRUGS (2)
  1. LIDOCAINE TOPICAL [Suspect]
     Active Substance: LIDOCAINE
     Indication: BACK PAIN
     Dates: start: 201905
  2. MELOXICAM. [Concomitant]
     Active Substance: MELOXICAM

REACTIONS (1)
  - Drug ineffective [Unknown]

NARRATIVE: CASE EVENT DATE: 201905
